FAERS Safety Report 24420955 (Version 2)
Quarter: 2024Q4

REPORT INFORMATION
  Report Type: Spontaneous
  Country: CN (occurrence: CN)
  Receive Date: 20241010
  Receipt Date: 20241018
  Transmission Date: 20250114
  Serious: No
  Sender: ROCHE
  Company Number: CN-BoehringerIngelheim-2024-BI-030000

PATIENT
  Age: 76 Year
  Sex: Female
  Weight: 40.0 kg

DRUGS (2)
  1. ALTEPLASE [Suspect]
     Active Substance: ALTEPLASE
     Indication: Cerebral artery embolism
     Route: 042
     Dates: start: 20240420, end: 20240420
  2. ALTEPLASE [Suspect]
     Active Substance: ALTEPLASE
     Dosage: MOST RECENT DOSE: 20/APR/2024
     Route: 042
     Dates: start: 20240420, end: 20240420

REACTIONS (1)
  - Haemorrhage [Recovering/Resolving]

NARRATIVE: CASE EVENT DATE: 20240420
